FAERS Safety Report 4868131-X (Version None)
Quarter: 2005Q4

REPORT INFORMATION
  Report Type: 
  Country: None (occurrence: None)
  Receive Date: 20051229
  Receipt Date: 20051215
  Transmission Date: 20060501
  Serious: Yes (Other)
  Sender: FDA-Public Use
  Company Number: PHMT2005CA00832

PATIENT
  Sex: Male

DRUGS (2)
  1. TEGRETOL [Suspect]
     Dosage: 1400 MG, QD
     Route: 048
  2. TEGRETOL [Suspect]
     Dosage: 30 UNK, UNK
     Route: 048

REACTIONS (2)
  - HYPOALBUMINAEMIA [None]
  - PROTEIN TOTAL ABNORMAL [None]
